FAERS Safety Report 6516712-X (Version None)
Quarter: 2009Q4

REPORT INFORMATION
  Report Type: 
  Country: None (occurrence: None)
  Receive Date: 20091223
  Receipt Date: 20090413
  Transmission Date: 20100525
  Serious: Yes (Other)
  Sender: FDA-Public Use
  Company Number: A0778454A

PATIENT
  Age: 80 Year
  Sex: Female

DRUGS (5)
  1. RYTHMOL [Suspect]
     Indication: DRUG USE FOR UNKNOWN INDICATION
     Route: 065
     Dates: start: 20090101, end: 20090301
  2. RYTHMOL SR [Suspect]
     Indication: ATRIAL FIBRILLATION
     Dosage: 225MG TWICE PER DAY
     Route: 048
     Dates: start: 20090411
  3. SYNTHROID [Concomitant]
  4. BONIVA [Concomitant]
  5. VITAMINS [Concomitant]

REACTIONS (3)
  - ATRIAL FIBRILLATION [None]
  - DRUG DISPENSING ERROR [None]
  - DRUG INEFFECTIVE [None]
